FAERS Safety Report 8543487-5 (Version None)
Quarter: 2012Q3

REPORT INFORMATION
  Report Type: 
  Country: None (occurrence: None)
  Receive Date: 20120727
  Receipt Date: 20120724
  Transmission Date: 20120928
  Serious: Yes (Hospitalization, Other)
  Sender: FDA-Public Use
  Company Number: PHHY2012BR056257

PATIENT
  Sex: Female
  Weight: 27 kg

DRUGS (4)
  1. OMEPRAZOLE [Concomitant]
     Indication: GASTRIC DISORDER
     Dosage: 1 DF, QD
  2. HYGROTON [Concomitant]
     Indication: BLOOD PRESSURE
     Dosage: 1 DF, QD
  3. FORMOTEROL FUMARATE [Suspect]
     Indication: ASTHMA
     Dosage: BID EVERY 12 HOURS (IN THE MORNING AND BEFORE SLEEP)
     Dates: start: 20090101
  4. DIGOXIN [Concomitant]
     Indication: PACEMAKER SYNDROME
     Dosage: 1 DF, QD

REACTIONS (5)
  - URINARY TRACT INFECTION [None]
  - ULCER [None]
  - VOMITING [None]
  - ASTHENIA [None]
  - GASTROINTESTINAL INFECTION [None]
